FAERS Safety Report 11889186 (Version 6)
Quarter: 2016Q3

REPORT INFORMATION
  Report Type: Spontaneous
  Country: US (occurrence: US)
  Receive Date: 20160105
  Receipt Date: 20160930
  Transmission Date: 20161109
  Serious: Yes (Hospitalization, Other)
  Sender: FDA-Public Use
  Company Number: US-PFIZER INC-2015443571

PATIENT
  Age: 76 Year
  Sex: Female
  Weight: 77 kg

DRUGS (1)
  1. XELJANZ [Suspect]
     Active Substance: TOFACITINIB CITRATE
     Indication: RHEUMATOID ARTHRITIS
     Dosage: 5 MG, 2X/DAY (ONCE IN MORNING AND ONCE AT NIGHT)
     Route: 048
     Dates: start: 201410

REACTIONS (5)
  - Pneumonia [Recovered/Resolved]
  - Blister [Unknown]
  - Urinary tract infection [Unknown]
  - Rash [Recovered/Resolved]
  - Acne [Unknown]

NARRATIVE: CASE EVENT DATE: 20150820
